FAERS Safety Report 10973018 (Version 1)
Quarter: 2015Q2

REPORT INFORMATION
  Report Type: Spontaneous
  Country: US (occurrence: US)
  Receive Date: 20150401
  Receipt Date: 20150401
  Transmission Date: 20150821
  Serious: Yes (Other)
  Sender: FDA-Public Use
  Company Number: US-JNJCP-30000272910

PATIENT
  Sex: Female
  Weight: 15 kg

DRUGS (3)
  1. CEPHALEXIN. [Concomitant]
     Active Substance: CEPHALEXIN
     Indication: ANTIBIOTIC THERAPY
     Dosage: 6 ML SINCE FIVE DAYS
  2. AVEENO BABY ECZEMA THERAPY [Suspect]
     Active Substance: OATMEAL
     Indication: ECZEMA
     Dosage: ONCE
     Route: 061
     Dates: start: 20150312, end: 20150312
  3. GRISEOFULVIN. [Concomitant]
     Active Substance: GRISEOFULVIN
     Indication: ANTIFUNGAL TREATMENT
     Dosage: ONE TEA SPOON SINCE FIVE DAYS

REACTIONS (2)
  - Application site urticaria [Not Recovered/Not Resolved]
  - Application site swelling [Recovering/Resolving]

NARRATIVE: CASE EVENT DATE: 20150312
